FAERS Safety Report 10144758 (Version 1)
Quarter: 2014Q2

REPORT INFORMATION
  Report Type: Spontaneous
  Country: US (occurrence: US)
  Receive Date: 20140430
  Receipt Date: 20140430
  Transmission Date: 20141212
  Serious: No
  Sender: FDA-Public Use
  Company Number: US-SANOFI-AVENTIS-2013SA093576

PATIENT
  Sex: Male

DRUGS (2)
  1. LOVENOX [Suspect]
     Route: 051
  2. VACCINES [Interacting]

REACTIONS (4)
  - Drug interaction [Unknown]
  - Swelling [Unknown]
  - Rash [Unknown]
  - Drug hypersensitivity [Unknown]
